FAERS Safety Report 25776877 (Version 1)
Quarter: 2025Q3

REPORT INFORMATION
  Report Type: Spontaneous
  Country: US (occurrence: US)
  Receive Date: 20250909
  Receipt Date: 20250909
  Transmission Date: 20251020
  Serious: No
  Sender: DOMPE FARMACEUTICI
  Company Number: US-FARMAPROD-202409-3252

PATIENT
  Sex: Female
  Weight: 57.92 kg

DRUGS (17)
  1. OXERVATE [Suspect]
     Active Substance: CENEGERMIN-BKBJ
     Indication: Neurotrophic keratopathy
     Route: 047
     Dates: start: 20240820
  2. RHOPRESSA [Concomitant]
     Active Substance: NETARSUDIL MESYLATE
  3. LUMIGAN [Concomitant]
     Active Substance: BIMATOPROST
  4. LORATADINE [Concomitant]
     Active Substance: LORATADINE
  5. ATORVASTATIN CALCIUM [Concomitant]
     Active Substance: ATORVASTATIN CALCIUM
  6. LOSARTAN  POTASSIUM [Concomitant]
  7. ESCITALOPRAM OXALATE [Concomitant]
     Active Substance: ESCITALOPRAM OXALATE
  8. KERENDIA [Concomitant]
     Active Substance: FINERENONE
  9. BRIMONIDINE TARTRATE [Concomitant]
     Active Substance: BRIMONIDINE TARTRATE
  10. ASPIRIN [Concomitant]
     Active Substance: ASPIRIN
  11. ACETAMINOPHEN [Concomitant]
     Active Substance: ACETAMINOPHEN
  12. BLINK GEL TEARS [Concomitant]
     Active Substance: POLYETHYLENE GLYCOL 400
  13. BRIMONIDINE TARTRATE-TIMOLOL [Concomitant]
  14. CARVEDILOL [Concomitant]
     Active Substance: CARVEDILOL
  15. HYDROCHLOROTHIAZIDE [Concomitant]
     Active Substance: HYDROCHLOROTHIAZIDE
  16. QUETIAPINE FUMARATE [Concomitant]
     Active Substance: QUETIAPINE FUMARATE
  17. TRAMADOL HCL [Concomitant]
     Active Substance: TRAMADOL HYDROCHLORIDE

REACTIONS (4)
  - Eye pain [Unknown]
  - Foreign body sensation in eyes [Unknown]
  - Eye swelling [Unknown]
  - Product administration error [Unknown]
